FAERS Safety Report 10406950 (Version 1)
Quarter: 2014Q3

REPORT INFORMATION
  Report Type: Report from Study
  Country: US (occurrence: US)
  Receive Date: 20140825
  Receipt Date: 20140825
  Transmission Date: 20150326
  Serious: Yes (Other)
  Sender: FDA-Public Use
  Company Number: US-ABBVIE-14P-163-1269616-00

PATIENT

DRUGS (1)
  1. LUPRON DEPOT [Suspect]
     Active Substance: LEUPROLIDE ACETATE
     Indication: ENDOMETRIOSIS
     Dates: start: 2008

REACTIONS (3)
  - Adnexa uteri pain [Not Recovered/Not Resolved]
  - Injection site pain [Unknown]
  - Ovarian disorder [Unknown]

NARRATIVE: CASE EVENT DATE: 2012
